FAERS Safety Report 9009948 (Version 3)
Quarter: 2013Q3

REPORT INFORMATION
  Report Type: Report from Study
  Country: GB (occurrence: GB)
  Receive Date: 20130110
  Receipt Date: 20130812
  Transmission Date: 20140515
  Serious: Yes (Hospitalization, Other)
  Sender: FDA-Public Use
  Company Number: GB-CELGENEUS-167-21880-12121023

PATIENT
  Age: 75 Year
  Sex: Male
  Weight: 58.8 kg

DRUGS (31)
  1. REVLIMID [Suspect]
     Indication: CHRONIC LYMPHOCYTIC LEUKAEMIA
     Route: 048
  2. DEXAMETHASONE [Suspect]
     Indication: CHRONIC LYMPHOCYTIC LEUKAEMIA
     Route: 065
  3. DEXAMETHASONE [Suspect]
     Dosage: 40 MILLIGRAM
     Route: 048
  4. ALEMTUZUMAB [Suspect]
     Indication: CHRONIC LYMPHOCYTIC LEUKAEMIA
     Route: 065
  5. ALLOPURINOL [Concomitant]
     Indication: PRODUCT USED FOR UNKNOWN INDICATION
     Route: 065
  6. CO-TRIMOXAZOLE [Concomitant]
     Indication: PROPHYLAXIS
     Dosage: 1440 MILLIGRAM
     Route: 048
  7. SERVENT [Concomitant]
     Indication: PROPHYLAXIS
     Dosage: 2 PUFF
     Route: 055
  8. ACICLOVIR [Concomitant]
     Indication: ANTIVIRAL PROPHYLAXIS
     Dosage: 600 MILLIGRAM
     Route: 048
     Dates: start: 20120423
  9. PARACETAMOL [Concomitant]
     Indication: ANALGESIC THERAPY
     Route: 048
     Dates: start: 20121203
  10. PARACETAMOL [Concomitant]
     Indication: ANALGESIC THERAPY
     Route: 048
  11. CHLORHEXIDINE [Concomitant]
     Indication: PRODUCT USED FOR UNKNOWN INDICATION
     Route: 048
  12. ITRACONAZOLE [Concomitant]
     Indication: PRODUCT USED FOR UNKNOWN INDICATION
     Route: 048
  13. LANSOPRAZOLE [Concomitant]
     Indication: PRODUCT USED FOR UNKNOWN INDICATION
     Route: 048
  14. ASPIRINE [Concomitant]
     Indication: PRODUCT USED FOR UNKNOWN INDICATION
     Route: 065
  15. IMMUNOGLOBULIN [Concomitant]
     Indication: PRODUCT USED FOR UNKNOWN INDICATION
     Route: 065
  16. G-CSF [Concomitant]
     Indication: COLONY STIMULATING FACTOR THERAPY
     Dosage: 128.5714 MILLIGRAM
     Route: 058
     Dates: start: 20121231
  17. G-CSF [Concomitant]
     Dosage: 300 MICROGRAM
     Route: 058
     Dates: start: 20121203
  18. SEPTRIN [Concomitant]
     Indication: INFECTION PROPHYLAXIS
     Route: 048
     Dates: start: 20120423
  19. CLENIL [Concomitant]
     Indication: INHALATION THERAPY
     Dosage: 1 PUFF
     Route: 048
  20. LACTULOSE [Concomitant]
     Indication: CONSTIPATION PROPHYLAXIS
     Dosage: 20
     Route: 048
     Dates: start: 20121217
  21. PREDNISOLONE [Concomitant]
     Indication: STEROID THERAPY
     Dosage: 15 MILLIGRAM
     Route: 048
     Dates: start: 20121217
  22. AMITRIPTYLINE [Concomitant]
     Indication: TENSION HEADACHE
     Route: 048
     Dates: start: 20121231
  23. AMITRIPTYLINE [Concomitant]
     Dosage: 10 MILLIGRAM
     Route: 048
     Dates: start: 20121219
  24. MORPHINE SULPHATE [Concomitant]
     Indication: ANALGESIC THERAPY
     Dosage: 60 MILLIGRAM
     Route: 048
     Dates: start: 20121219
  25. MORPHINE SULPHATE [Concomitant]
     Route: 048
     Dates: start: 20121215
  26. MORPHINE SULPHATE [Concomitant]
     Dosage: 40 MILLIGRAM
     Route: 048
     Dates: start: 20121231
  27. CALCIUM CARBONATE ADCAL D3 [Concomitant]
     Indication: VITAMIN SUPPLEMENTATION
     Dosage: UNITS
     Route: 048
     Dates: start: 20121214
  28. OMEPRAZOLE [Concomitant]
     Indication: GASTRIC PH INCREASED
     Dosage: 20 MILLIGRAM
     Route: 048
     Dates: start: 20121207
  29. SOLIFENACIN [Concomitant]
     Indication: MUSCLE SPASMS
     Dosage: 300 MILLIGRAM
     Route: 058
     Dates: start: 20121207
  30. SOLIFENACIN [Concomitant]
     Dosage: 5 MILLIGRAM
     Route: 058
     Dates: start: 20121207
  31. ALENDRONIC ACID [Concomitant]
     Indication: OSTEOPOROSIS PROPHYLAXIS
     Route: 048
     Dates: start: 20121216

REACTIONS (4)
  - Immune thrombocytopenic purpura [Not Recovered/Not Resolved]
  - Febrile neutropenia [Recovered/Resolved]
  - IIIrd nerve paralysis [Not Recovered/Not Resolved]
  - Optic neuritis [Not Recovered/Not Resolved]
